FAERS Safety Report 25641847 (Version 2)
Quarter: 2025Q3

REPORT INFORMATION
  Report Type: Report from Study
  Country: US (occurrence: US)
  Receive Date: 20250804
  Receipt Date: 20250924
  Transmission Date: 20251021
  Serious: No
  Sender: BIOGEN
  Company Number: US-BIOGEN-2025BI01318710

PATIENT
  Sex: Female

DRUGS (3)
  1. ZURZUVAE [Suspect]
     Active Substance: ZURANOLONE
     Indication: Perinatal depression
     Dosage: TAKE 2 (25MG) CAPSULES IN THE EVENING FOR 14 DAYS.
     Route: 050
     Dates: start: 20250711
  2. ZURZUVAE [Suspect]
     Active Substance: ZURANOLONE
     Route: 050
     Dates: start: 202507
  3. LEXAPRO [Concomitant]
     Active Substance: ESCITALOPRAM OXALATE
     Indication: Product used for unknown indication
     Route: 050
     Dates: start: 202505

REACTIONS (3)
  - Fatigue [Unknown]
  - Tremor [Unknown]
  - Somnolence [Unknown]
